FAERS Safety Report 4453946-2 (Version None)
Quarter: 2004Q3

REPORT INFORMATION
  Report Type: 
  Country: None (occurrence: None)
  Receive Date: 20040902
  Receipt Date: 20040628
  Transmission Date: 20050211
  Serious: No
  Sender: FDA-Public Use
  Company Number: 200418735BWH

PATIENT
  Age: 21 Year
  Sex: Male
  Weight: 90.7194 kg

DRUGS (1)
  1. LEVITRA [Suspect]
     Indication: SEXUAL DYSFUNCTION
     Dosage: ORAL
     Route: 048
     Dates: start: 20040618

REACTIONS (3)
  - GENITAL ERYTHEMA [None]
  - TESTICULAR DISORDER [None]
  - TESTICULAR SWELLING [None]
